FAERS Safety Report 12811901 (Version 2)
Quarter: 2017Q1

REPORT INFORMATION
  Report Type: Report from Study
  Country: AU (occurrence: AU)
  Receive Date: 20161005
  Receipt Date: 20170111
  Transmission Date: 20170428
  Serious: Yes (Life-Threatening, Hospitalization)
  Sender: FDA-Public Use
  Company Number: AU-ROCHE-1834728

PATIENT
  Age: 69 Year
  Sex: Male
  Weight: 157.6 kg

DRUGS (26)
  1. RIVAROXABAN [Concomitant]
     Active Substance: RIVAROXABAN
     Indication: ATRIAL FIBRILLATION
     Route: 065
     Dates: start: 201511, end: 20160922
  2. KEFLEX [Concomitant]
     Active Substance: CEPHALEXIN
     Indication: UPPER RESPIRATORY TRACT INFECTION
     Route: 065
     Dates: start: 20160823, end: 20160827
  3. METOCLOPRAMIDE HYDROCHLORIDE. [Concomitant]
     Active Substance: METOCLOPRAMIDE HYDROCHLORIDE
     Indication: PREMEDICATION
     Route: 065
     Dates: start: 20160831, end: 20160831
  4. SODIUM DIATRIZOATE [Concomitant]
     Route: 065
     Dates: start: 20160923, end: 20160923
  5. METOPROLOL. [Concomitant]
     Active Substance: METOPROLOL
     Indication: ATRIAL FIBRILLATION
     Dosage: INDICATION: ATRIAL FIBRILLATION
     Route: 065
     Dates: start: 201511, end: 20160927
  6. OXYNORM [Concomitant]
     Active Substance: OXYCODONE HYDROCHLORIDE
     Indication: NON-SMALL CELL LUNG CANCER
     Dosage: INDICATION: PROGRESSIVE NSCLC
     Route: 065
     Dates: start: 20160929, end: 20160929
  7. PALONOSETRON [Concomitant]
     Active Substance: PALONOSETRON
     Indication: PREMEDICATION
     Route: 065
     Dates: start: 20160824, end: 20160824
  8. ONDANSETRON [Concomitant]
     Active Substance: ONDANSETRON
     Indication: NAUSEA
     Route: 065
     Dates: start: 20160923, end: 20160927
  9. ENOXAPARIN [Concomitant]
     Active Substance: ENOXAPARIN
     Indication: PROPHYLAXIS
     Route: 065
     Dates: start: 20161001, end: 20161002
  10. FENTANYL. [Concomitant]
     Active Substance: FENTANYL
     Indication: NON-SMALL CELL LUNG CANCER
     Route: 065
     Dates: start: 20160930, end: 20161002
  11. PANADOL [Concomitant]
     Active Substance: ACETAMINOPHEN
     Indication: PAIN
     Route: 065
     Dates: start: 201607, end: 20160927
  12. LYRICA [Concomitant]
     Active Substance: PREGABALIN
     Indication: PAIN
     Route: 065
     Dates: start: 201607, end: 20160930
  13. COLOXYL WITH SENNA [Concomitant]
     Active Substance: DOCUSATE\SENNOSIDES
     Indication: NON-SMALL CELL LUNG CANCER
     Dosage: INDICATION: PROGRESSIVE NSCLC
     Route: 065
     Dates: start: 20161001, end: 20161001
  14. ATEZOLIZUMAB [Suspect]
     Active Substance: ATEZOLIZUMAB
     Indication: NON-SMALL CELL LUNG CANCER STAGE IV
     Dosage: THE MOST RECENT DOSE OF ATEZOLILZUMAB (1200 MG) PRIOR TO ONSET OF EVENTS WAS ADMINISTERED ON 14/SEP/
     Route: 042
     Dates: start: 20160824
  15. OXYNORM [Concomitant]
     Active Substance: OXYCODONE HYDROCHLORIDE
     Indication: PAIN
     Dosage: INDICATION: PAIN
     Route: 065
     Dates: start: 201607, end: 20161002
  16. LORAZEPAM. [Concomitant]
     Active Substance: LORAZEPAM
     Indication: NON-SMALL CELL LUNG CANCER
     Route: 065
     Dates: start: 20161003, end: 20161003
  17. NAB-PACLITAXEL [Suspect]
     Active Substance: PACLITAXEL
     Indication: NON-SMALL CELL LUNG CANCER STAGE IV
     Dosage: DAYS 1, 8, AND 15 OF EVERY CYCLE, PER PROTOCOL?THE MOST RECENT DOSE OF PACLITAXEL ALBUMIN (230 MG) P
     Route: 042
     Dates: start: 20160824
  18. FUROSEMIDE. [Concomitant]
     Active Substance: FUROSEMIDE
     Indication: MITRAL VALVE INCOMPETENCE
     Route: 065
     Dates: start: 201607, end: 20160922
  19. TARGIN [Concomitant]
     Active Substance: NALOXONE HYDROCHLORIDE\OXYCODONE HYDROCHLORIDE
     Indication: PAIN
     Route: 065
     Dates: start: 201607, end: 20160930
  20. DIAZEPAM. [Concomitant]
     Active Substance: DIAZEPAM
     Indication: PAIN
     Route: 065
     Dates: start: 20160824, end: 20160824
  21. METOPROLOL. [Concomitant]
     Active Substance: METOPROLOL
     Indication: ATRIAL FIBRILLATION
     Route: 065
     Dates: start: 20160929
  22. SPIRONOLACTONE. [Concomitant]
     Active Substance: SPIRONOLACTONE
     Indication: MITRAL VALVE INCOMPETENCE
     Route: 065
     Dates: start: 201607, end: 20160930
  23. SPIRONOLACTONE. [Concomitant]
     Active Substance: SPIRONOLACTONE
     Indication: CARDIAC FAILURE
  24. CARBOPLATIN. [Suspect]
     Active Substance: CARBOPLATIN
     Indication: NON-SMALL CELL LUNG CANCER STAGE IV
     Dosage: AREA UNDER THE CONCENTRATION-TIME CURVE (AUC=6)?THE MOST RECENT DOSE OF CARBOPLATIN (900 MG) PRIOR T
     Route: 042
     Dates: start: 20160824
  25. PANTOPRAZOLE [Concomitant]
     Active Substance: PANTOPRAZOLE SODIUM
     Route: 065
     Dates: start: 201511, end: 20160924
  26. COLOXYL WITH SENNA [Concomitant]
     Active Substance: DOCUSATE\SENNOSIDES
     Indication: CONSTIPATION
     Dosage: INDICATION: CONSTIPATION
     Route: 065
     Dates: start: 201607, end: 201609

REACTIONS (2)
  - Cardiac failure [Not Recovered/Not Resolved]
  - Diarrhoea [Not Recovered/Not Resolved]

NARRATIVE: CASE EVENT DATE: 20160922
